FAERS Safety Report 10233508 (Version 1)
Quarter: 2014Q2

REPORT INFORMATION
  Report Type: Spontaneous
  Country: PT (occurrence: PT)
  Receive Date: 20140612
  Receipt Date: 20140612
  Transmission Date: 20141212
  Serious: Yes (Hospitalization, Other)
  Sender: FDA-Public Use
  Company Number: PT-ABBVIE-14P-130-1244302-00

PATIENT
  Sex: Female

DRUGS (6)
  1. HUMIRA [Suspect]
     Indication: CROHN^S DISEASE
     Dosage: INITIAL DOSE (INDUCTION)
     Route: 058
     Dates: start: 20041126, end: 20041126
  2. HUMIRA [Suspect]
     Route: 058
     Dates: start: 200412
  3. METHOTREXATE [Concomitant]
     Indication: CROHN^S DISEASE
     Route: 058
  4. METHOTREXATE [Concomitant]
     Dosage: AFTER 2ND DOSE OF HUMIRA
     Route: 058
     Dates: start: 200412, end: 200603
  5. MIRTAZAPINE [Concomitant]
     Indication: DEPRESSION
     Dates: start: 201301
  6. AZATHIOPRINE [Concomitant]
     Indication: CROHN^S DISEASE
     Dates: start: 201307

REACTIONS (8)
  - Anxiety [Unknown]
  - Constipation [Unknown]
  - Weight decreased [Recovered/Resolved]
  - Anaemia [Recovered/Resolved]
  - Gastrointestinal disorder [Recovered/Resolved]
  - Abdominal pain upper [Recovered/Resolved]
  - Diarrhoea [Unknown]
  - Abdominal pain [Recovered/Resolved]
